FAERS Safety Report 7888667-7 (Version None)
Quarter: 2011Q4

REPORT INFORMATION
  Report Type: 
  Country: None (occurrence: None)
  Receive Date: 20111103
  Receipt Date: 20111026
  Transmission Date: 20120403
  Serious: Yes (Other)
  Sender: FDA-Public Use
  Company Number: US-BAYER-2011-104598

PATIENT
  Age: 28 Year
  Sex: Female

DRUGS (2)
  1. YAZ [Suspect]
     Dosage: UNK
     Dates: start: 20070212, end: 20091003
  2. YASMIN [Suspect]
     Dosage: UNK
     Dates: start: 20050113, end: 20050913

REACTIONS (1)
  - CHOLECYSTECTOMY [None]
